FAERS Safety Report 4569348-4 (Version None)
Quarter: 2005Q1

REPORT INFORMATION
  Report Type: 
  Country: None (occurrence: None)
  Receive Date: 20050203
  Receipt Date: 20050125
  Transmission Date: 20050727
  Serious: Yes (Death)
  Sender: FDA-Public Use
  Company Number: GB-GLAXOSMITHKLINE-B0365687A

PATIENT
  Age: 93 Year

DRUGS (1)
  1. AUGMENTIN [Suspect]
     Route: 065

REACTIONS (2)
  - DEATH [None]
  - PNEUMONIA [None]
